FAERS Safety Report 4810070-4 (Version None)
Quarter: 2005Q4

REPORT INFORMATION
  Report Type: 
  Country: None (occurrence: None)
  Receive Date: 20051024
  Receipt Date: 20051013
  Transmission Date: 20060501
  Serious: Yes (Hospitalization)
  Sender: FDA-Public Use
  Company Number: FR-2005-015722

PATIENT
  Age: 51 Year
  Sex: Female

DRUGS (15)
  1. MIRENA [Suspect]
     Indication: METRORRHAGIA
     Dosage: 20 UG/DAY, CONT, INTRA-UTERINE
     Route: 015
     Dates: start: 20031201
  2. LEVOTHYROXINE SODIUM [Concomitant]
  3. ZOLOFT [Concomitant]
  4. ATACAND [Concomitant]
  5. XANAX [Concomitant]
  6. PANTOPRAZOLE SODIUM [Concomitant]
  7. ENDOTELON (HERBAL EXTRACT NOS, VITIS VINIFERA) [Concomitant]
  8. PIASCLEDINE (PERSEA AMERICANA OIL, GLYCINE MAX SEED OIL) [Concomitant]
  9. STRUCTUM (CHONDROITIN SULFATE SODIUM) [Concomitant]
  10. LESCOL [Concomitant]
  11. INONGAN (CAMPHOR, METHYL SALICYLATE, EUCALYPTUS GLOBULUS OIL, ISOBORNY [Concomitant]
  12. B O P (OLEA EUROPAEA LEAF EXTRACT, BETULA PENDULA EXTRACT) [Concomitant]
  13. BIAFINE (PROPYLENE GLYCOL, STEARYL ALCOHOL, ETHYLENE GLYCOL MONOSTEARA [Concomitant]
  14. HIRUCREME (HIRUDIN) [Concomitant]
  15. CLAMOXYL /NET/ (AMOXICILLIN TRIHYDRATE) [Concomitant]

REACTIONS (3)
  - COLITIS ULCERATIVE [None]
  - INFLAMMATION [None]
  - THROMBOSIS [None]
